FAERS Safety Report 8372779-8 (Version None)
Quarter: 2012Q2

REPORT INFORMATION
  Report Type: 
  Country: None (occurrence: None)
  Receive Date: 20120521
  Receipt Date: 20120515
  Transmission Date: 20120825
  Serious: Yes (Other)
  Sender: FDA-Public Use
  Company Number: CY-ASTELLAS-2012EU003577

PATIENT
  Sex: Male

DRUGS (3)
  1. PROGRAF [Suspect]
     Indication: RENAL TRANSPLANT
     Dosage: 0.12 MG/KG, UNKNOWN/D
     Route: 048
     Dates: end: 20120513
  2. CORTICOSTEROID NOS [Concomitant]
     Indication: PROPHYLAXIS AGAINST TRANSPLANT REJECTION
     Dosage: UNK
     Route: 065
     Dates: end: 20120513
  3. MYCOPHENOLATE MOFETIL [Concomitant]
     Indication: PROPHYLAXIS AGAINST TRANSPLANT REJECTION
     Dosage: UNK
     Route: 048
     Dates: end: 20120513

REACTIONS (3)
  - DEMENTIA [None]
  - MENTAL STATUS CHANGES [None]
  - AMNESIA [None]
